FAERS Safety Report 10424250 (Version 1)
Quarter: 2014Q3

REPORT INFORMATION
  Report Type: Report from Study
  Country: CA (occurrence: CA)
  Receive Date: 20140902
  Receipt Date: 20140902
  Transmission Date: 20150326
  Serious: Yes (Life-Threatening, Hospitalization)
  Sender: FDA-Public Use
  Company Number: CA-PFIZER INC-2014238231

PATIENT
  Age: 75 Year
  Sex: Male

DRUGS (12)
  1. JEVTANA [Suspect]
     Active Substance: CABAZITAXEL
     Dosage: UNK - 25 MG/M2, EVERY 3 WEEKS
     Route: 042
  2. IMODIUM [Concomitant]
     Active Substance: LOPERAMIDE HYDROCHLORIDE
  3. PANTOPRAZOLE [Concomitant]
     Active Substance: PANTOPRAZOLE SODIUM
  4. LYRICA [Concomitant]
     Active Substance: PREGABALIN
  5. PREDNISONE. [Concomitant]
     Active Substance: PREDNISONE
  6. VITAMIN D [Concomitant]
     Active Substance: CHOLECALCIFEROL
  7. HEPARIN SODIUM. [Suspect]
     Active Substance: HEPARIN SODIUM
  8. ALDACTONE [Concomitant]
     Active Substance: SPIRONOLACTONE
  9. CALCIUM [Concomitant]
     Active Substance: CALCIUM
  10. ZOLADEX LA [Concomitant]
     Active Substance: GOSERELIN ACETATE
     Dosage: IMPLANT INJ DEPOT 10.8MG
  11. SENOKOT [Concomitant]
     Active Substance: SENNOSIDES
  12. ZOLEDRONIC ACID [Concomitant]
     Active Substance: ZOLEDRONIC ACID

REACTIONS (5)
  - Pulmonary embolism [Recovering/Resolving]
  - Gastrointestinal haemorrhage [Recovering/Resolving]
  - Neutropenia [Recovering/Resolving]
  - Diarrhoea [Recovering/Resolving]
  - Oesophagitis [Recovering/Resolving]
